FAERS Safety Report 18842264 (Version 1)
Quarter: 2021Q1

REPORT INFORMATION
  Report Type: Spontaneous
  Country: BR (occurrence: BR)
  Receive Date: 20210203
  Receipt Date: 20210203
  Transmission Date: 20210419
  Serious: Yes (Other)
  Sender: FDA-Public Use
  Company Number: BR-PFIZER INC-2021081242

PATIENT
  Sex: Female

DRUGS (1)
  1. FELDENE [Suspect]
     Active Substance: PIROXICAM
     Indication: DYSMENORRHOEA
     Dosage: UNK

REACTIONS (4)
  - Vision blurred [Not Recovered/Not Resolved]
  - Tunnel vision [Not Recovered/Not Resolved]
  - Visual impairment [Not Recovered/Not Resolved]
  - Swelling [Unknown]
